FAERS Safety Report 6259213-9 (Version None)
Quarter: 2009Q3

REPORT INFORMATION
  Report Type: 
  Country: None (occurrence: None)
  Receive Date: 20090702
  Receipt Date: 20090618
  Transmission Date: 20100115
  Serious: Yes (Hospitalization)
  Sender: FDA-Public Use
  Company Number: 8047159

PATIENT

DRUGS (12)
  1. CIMZIA [Suspect]
     Indication: RHEUMATOID ARTHRITIS
     Dosage: 400 MG 1/2W SC
     Route: 058
     Dates: start: 20090505, end: 20090519
  2. METHOTREXATE [Concomitant]
  3. FOLIC ACID [Concomitant]
  4. ELAVIL [Concomitant]
  5. CELEBREX [Concomitant]
  6. FLEXERIL [Concomitant]
  7. ASPIRIN [Concomitant]
  8. COREG [Concomitant]
  9. PRAVASTATIN [Concomitant]
  10. LISINOPRIL [Concomitant]
  11. HYDROCHLOROTHIAZIDE [Concomitant]
  12. POTASSIUM CHLORIDE [Concomitant]

REACTIONS (1)
  - ARTHRITIS INFECTIVE [None]
